FAERS Safety Report 21419160 (Version 1)
Quarter: 2022Q4

REPORT INFORMATION
  Report Type: Spontaneous
  Country: CN (occurrence: CN)
  Receive Date: 20221006
  Receipt Date: 20221006
  Transmission Date: 20230113
  Serious: Yes (Hospitalization, Other)
  Sender: FDA-Public Use
  Company Number: CN-009507513-2210CHN000228

PATIENT
  Age: 53 Year
  Sex: Male

DRUGS (5)
  1. CILASTATIN SODIUM\IMIPENEM [Suspect]
     Active Substance: CILASTATIN SODIUM\IMIPENEM
     Indication: Pneumonia
     Dosage: 1 G, Q8H,IV DRIP
     Route: 041
     Dates: start: 20200512, end: 20200518
  2. MOXIFLOXACIN HYDROCHLORIDE [Suspect]
     Active Substance: MOXIFLOXACIN HYDROCHLORIDE
     Indication: Mycobacterial infection
     Dosage: 0.4 G, QD,IV DRIP
     Route: 041
     Dates: start: 20200512, end: 20200518
  3. VALPROIC ACID [Concomitant]
     Active Substance: VALPROIC ACID
     Indication: Seizure
     Dosage: 0.5 G, QD, ORAL
     Route: 048
     Dates: start: 20200517, end: 20200520
  4. AZITHROMYCIN [Concomitant]
     Active Substance: AZITHROMYCIN
     Indication: Mycobacterial infection
     Dosage: 0.5 G, QD,IV DRIP
     Route: 041
     Dates: start: 20200512, end: 20200520
  5. AMIKACIN SULFATE AND SODIUM CHLORIDE [Concomitant]
     Indication: Mycobacterial infection
     Dosage: 0.4 G, QD,IV DRIP
     Route: 041
     Dates: start: 20200512, end: 20200513

REACTIONS (3)
  - Epilepsy [Recovered/Resolved]
  - Renal impairment [Unknown]
  - Nervous system disorder [Unknown]

NARRATIVE: CASE EVENT DATE: 20200517
